FAERS Safety Report 7170534-8 (Version None)
Quarter: 2010Q4

REPORT INFORMATION
  Report Type: 
  Country: None (occurrence: None)
  Receive Date: 20101217
  Receipt Date: 20101214
  Transmission Date: 20110411
  Serious: Yes (Death)
  Sender: FDA-Public Use
  Company Number: PHHY2010AU85113

PATIENT
  Sex: Male
  Weight: 97 kg

DRUGS (2)
  1. CLOZAPINE [Suspect]
     Indication: SCHIZOPHRENIA
     Dosage: 300 MG
  2. CITALOPRAM HYDROBROMIDE [Suspect]

REACTIONS (1)
  - BURKITT'S LYMPHOMA [None]
